FAERS Safety Report 8344792-8 (Version None)
Quarter: 2012Q2

REPORT INFORMATION
  Report Type: 
  Country: None (occurrence: None)
  Receive Date: 20120508
  Receipt Date: 20120501
  Transmission Date: 20120825
  Serious: Yes (Death, Hospitalization)
  Sender: FDA-Public Use
  Company Number: US-GLAXOSMITHKLINE-A0871764A

PATIENT
  Age: 68 Year
  Sex: Female
  Weight: 119.5 kg

DRUGS (7)
  1. LIPITOR [Concomitant]
  2. PREMARIN [Concomitant]
  3. DIOVAN [Concomitant]
  4. AVANDIA [Suspect]
     Indication: TYPE 2 DIABETES MELLITUS
     Route: 048
     Dates: end: 20041207
  5. GLUCOPHAGE [Concomitant]
  6. GLUCOTROL [Concomitant]
  7. NORVASC [Concomitant]

REACTIONS (8)
  - MYOCARDIAL INFARCTION [None]
  - SUDDEN CARDIAC DEATH [None]
  - MULTIPLE FRACTURES [None]
  - CARDIAC FAILURE CONGESTIVE [None]
  - ATRIAL FIBRILLATION [None]
  - MACULAR OEDEMA [None]
  - DEATH [None]
  - CARDIOVASCULAR DISORDER [None]
